FAERS Safety Report 10423490 (Version 2)
Quarter: 2014Q3

REPORT INFORMATION
  Report Type: Report from Study
  Country: CA (occurrence: CA)
  Receive Date: 20140902
  Receipt Date: 20140902
  Transmission Date: 20150326
  Serious: Yes (Other)
  Sender: FDA-Public Use
  Company Number: CA-JNJFOC-20140419208

PATIENT
  Age: 40 Year
  Sex: Female
  Weight: 48 kg

DRUGS (7)
  1. LEUCOVORIN [Concomitant]
     Active Substance: LEUCOVORIN
     Route: 065
  2. REMICADE [Suspect]
     Active Substance: INFLIXIMAB
     Indication: PSORIATIC ARTHROPATHY
     Route: 042
     Dates: start: 200912
  3. CELEBREX [Concomitant]
     Active Substance: CELECOXIB
     Route: 065
  4. VIVAMYNE [Concomitant]
     Route: 065
  5. IRON INFUSIONS [Concomitant]
     Dosage: HAD 7 INFUSIONS IN 2014
     Route: 065
  6. METHOTREXATE [Concomitant]
     Active Substance: METHOTREXATE
     Dosage: 6 PILLS
     Route: 065
  7. PENTAZOLE (MEBENDAZOLE) [Concomitant]
     Route: 065

REACTIONS (7)
  - Meningioma [Unknown]
  - Lymphadenopathy [Unknown]
  - Arthralgia [Unknown]
  - Psoriatic arthropathy [Not Recovered/Not Resolved]
  - Activities of daily living impaired [Not Recovered/Not Resolved]
  - Insomnia [Not Recovered/Not Resolved]
  - Chest pain [Recovered/Resolved]

NARRATIVE: CASE EVENT DATE: 201309
